FAERS Safety Report 6706230-8 (Version None)
Quarter: 2010Q2

REPORT INFORMATION
  Report Type: 
  Country: None (occurrence: None)
  Receive Date: 20100503
  Receipt Date: 20100423
  Transmission Date: 20101027
  Serious: Yes (Other)
  Sender: FDA-Public Use
  Company Number: BR-SANOFI-AVENTIS-2010SA024046

PATIENT
  Sex: Male
  Weight: 83 kg

DRUGS (12)
  1. LANTUS [Suspect]
     Route: 058
     Dates: start: 20020101
  2. OPTIPEN [Suspect]
     Dates: end: 20100101
  3. HUMALOG [Concomitant]
     Dosage: ACCORDING TO GLYCEMIC RESULTS
     Route: 058
  4. METFORMIN [Concomitant]
     Route: 048
  5. ROSUVASTATIN CALCIUM [Concomitant]
     Route: 048
  6. VALSARTAN [Concomitant]
     Route: 048
  7. ZANIDIP [Concomitant]
     Route: 048
  8. ATENOLOL [Concomitant]
     Route: 048
  9. ALDACTONE [Concomitant]
     Route: 048
  10. ASPIRIN [Concomitant]
     Route: 048
  11. DIOSMIN [Concomitant]
     Route: 048
  12. CILOSTAZOL [Concomitant]
     Route: 048

REACTIONS (1)
  - HEPATIC NEOPLASM [None]
